FAERS Safety Report 9838860 (Version 1)
Quarter: 2014Q1

REPORT INFORMATION
  Report Type: Spontaneous
  Country: DE (occurrence: DE)
  Receive Date: 20140123
  Receipt Date: 20140123
  Transmission Date: 20141002
  Serious: Yes (Death)
  Sender: FDA-Public Use
  Company Number: DE-TEVA-457353GER

PATIENT
  Age: 78 Year
  Sex: Female
  Weight: 74 kg

DRUGS (17)
  1. CLOPIDOGREL [Suspect]
     Indication: CORONARY ARTERIAL STENT INSERTION
     Dosage: 75 MILLIGRAM DAILY;
     Route: 048
     Dates: start: 20121122, end: 20130109
  2. FERRO SANOL DUODENAL [Concomitant]
     Dosage: 1 DOSAGE FORMS DAILY;
     Dates: end: 20130111
  3. METOBETA RETARD [Concomitant]
     Dosage: 100 MILLIGRAM DAILY;
  4. RAMIPRIL [Concomitant]
     Dosage: .5 DOSAGE FORMS DAILY;
     Dates: end: 20130101
  5. SIMVASTATIN [Concomitant]
     Dosage: 40 MILLIGRAM DAILY;
     Dates: end: 20121227
  6. TORASEMID 10MG [Concomitant]
     Dosage: 2 DOSAGE FORMS DAILY;
     Dates: start: 20121228, end: 20130107
  7. TORASEMID 10MG [Concomitant]
     Dosage: 1 DOSAGE FORMS DAILY;
     Dates: start: 20130108, end: 20130123
  8. TORASEMID 10MG [Concomitant]
     Dosage: .5 DOSAGE FORMS DAILY;
     Dates: start: 20130124, end: 20130125
  9. VOMEX [Concomitant]
     Dosage: 3 DOSAGE FORMS DAILY;
     Dates: start: 20121225, end: 20131228
  10. RADEDORM [Concomitant]
     Dosage: 1 DOSAGE FORMS DAILY;
     Dates: start: 20121228, end: 20130105
  11. BIFITERAL [Concomitant]
     Dosage: 3 DOSAGE FORMS DAILY;
     Dates: start: 20121231, end: 20121231
  12. KONAKION [Concomitant]
     Dates: start: 20130102, end: 20130111
  13. FENISTIL 24H [Concomitant]
     Indication: PRURITUS
     Dosage: 1 DOSAGE FORMS DAILY;
     Dates: start: 20130101, end: 20130111
  14. PREDNI [Concomitant]
     Route: 042
     Dates: start: 20130108, end: 20130110
  15. HEPARIN [Concomitant]
     Dosage: 15000 IU (INTERNATIONAL UNIT) DAILY;
     Dates: start: 20121228, end: 20130103
  16. HEPARIN [Concomitant]
     Dosage: 10000 IU (INTERNATIONAL UNIT) DAILY;
     Dates: start: 20130108, end: 20130122
  17. FALITHROM [Concomitant]
     Indication: ATRIAL FIBRILLATION

REACTIONS (2)
  - Acute hepatic failure [Fatal]
  - Jaundice [Fatal]
